FAERS Safety Report 6342565-9 (Version None)
Quarter: 2009Q3

REPORT INFORMATION
  Report Type: 
  Country: None (occurrence: None)
  Receive Date: 20090908
  Receipt Date: 20090826
  Transmission Date: 20100115
  Serious: Yes (Other)
  Sender: FDA-Public Use
  Company Number: US-BAYER-200928995NA

PATIENT
  Age: 40 Year
  Sex: Female

DRUGS (3)
  1. BETASERON [Suspect]
     Indication: MULTIPLE SCLEROSIS
     Route: 058
     Dates: start: 20071114, end: 20080101
  2. BETASERON [Suspect]
     Route: 058
     Dates: start: 20080301
  3. REBIF [Concomitant]

REACTIONS (2)
  - DEPRESSION [None]
  - MENTAL DISORDER [None]
